FAERS Safety Report 6830528-6 (Version None)
Quarter: 2010Q3

REPORT INFORMATION
  Report Type: 
  Country: None (occurrence: None)
  Receive Date: 20100712
  Receipt Date: 20100311
  Transmission Date: 20110219
  Serious: Yes (Death, Other)
  Sender: FDA-Public Use
  Company Number: US-ASTRAZENECA-2009SE26067

PATIENT
  Age: 45 Year
  Sex: Male
  Weight: 81.6 kg

DRUGS (13)
  1. SEROQUEL [Suspect]
     Route: 048
     Dates: start: 20030430, end: 20080423
  2. THORAZINE [Concomitant]
     Dates: start: 20030101
  3. ZYPREXA [Concomitant]
     Dosage: 5-20 MG
     Dates: start: 20020101
  4. ROXICET [Concomitant]
     Dosage: 5 TO 325 MG
     Dates: start: 20030307
  5. LORAZEPAM [Concomitant]
     Dates: start: 20030101
  6. TRAZODONE [Concomitant]
     Dates: start: 20030101
  7. NEURONTIN [Concomitant]
     Dates: start: 20030101
  8. LEXAPRO [Concomitant]
     Dates: start: 20030101
  9. TRICOR [Concomitant]
     Dates: start: 20030101
  10. ATIVAN [Concomitant]
  11. VICODIN [Concomitant]
  12. LIPITOR [Concomitant]
  13. LEVAQUIN [Concomitant]

REACTIONS (7)
  - BLOOD CHOLESTEROL INCREASED [None]
  - DEATH [None]
  - DIABETES MELLITUS [None]
  - HYPERLIPIDAEMIA [None]
  - PANCREATITIS [None]
  - PANCREATITIS CHRONIC [None]
  - TYPE 2 DIABETES MELLITUS [None]
